FAERS Safety Report 13140853 (Version 1)
Quarter: 2017Q1

REPORT INFORMATION
  Report Type: Spontaneous
  Country: DK (occurrence: DK)
  Receive Date: 20170123
  Receipt Date: 20170123
  Transmission Date: 20170428
  Serious: Yes (Hospitalization)
  Sender: FDA-Public Use
  Company Number: DK-TEVA-730005ACC

PATIENT
  Age: 75 Year
  Sex: Female

DRUGS (14)
  1. IBUPROFEN ^TEVA^ [Suspect]
     Active Substance: IBUPROFEN
     Indication: TOOTHACHE
     Dosage: 1200 MILLIGRAM DAILY;
     Route: 048
     Dates: start: 20160408, end: 20160414
  2. LOSARTAN KALIUM ^TEVA^ [Suspect]
     Active Substance: LOSARTAN
     Indication: HYPERTENSION
     Dosage: 50 MILLIGRAM DAILY;
     Route: 048
  3. CRESTOR [Concomitant]
     Active Substance: ROSUVASTATIN CALCIUM
     Dosage: 5 MILLIGRAM DAILY;
  4. MAREVAN [Concomitant]
     Active Substance: WARFARIN SODIUM
     Indication: ANTICOAGULANT THERAPY
  5. METFORMIN [Concomitant]
     Active Substance: METFORMIN HYDROCHLORIDE
     Dosage: 1000 MILLIGRAM DAILY;
  6. METOPROLOLSUCCINAT [Concomitant]
     Active Substance: METOPROLOL SUCCINATE
     Indication: ATRIAL FIBRILLATION
     Dosage: 50 MILLIGRAM DAILY;
  7. DIGOXIN ^DAK^ [Suspect]
     Active Substance: DIGOXIN
     Indication: ATRIAL FIBRILLATION
     Dosage: 125 MICROGRAM DAILY;
     Route: 048
  8. PAMOL [Concomitant]
     Active Substance: ACETAMINOPHEN
     Indication: TOOTHACHE
     Dosage: 1500 MILLIGRAM DAILY;
     Dates: start: 20160408
  9. ESTROFEM [Concomitant]
     Active Substance: ESTRADIOL CYPIONATE
     Dosage: 1 MILLIGRAM DAILY;
  10. HALCION [Concomitant]
     Active Substance: TRIAZOLAM
     Dosage: FOR THE NIGHT.
  11. FURIX [Concomitant]
     Active Substance: FUROSEMIDE
     Dosage: 60 MILLIGRAM DAILY;
  12. ELTROXIN [Concomitant]
     Active Substance: LEVOTHYROXINE
     Dosage: 50 MICROGRAM DAILY;
  13. NITROLINGUAL [Concomitant]
     Active Substance: NITROGLYCERIN
     Dosage: WHEN NEEDED
  14. PANTOPRAZOLE [Concomitant]
     Active Substance: PANTOPRAZOLE SODIUM
     Dosage: 40 MILLIGRAM DAILY;

REACTIONS (1)
  - Bradycardia [Recovered/Resolved]

NARRATIVE: CASE EVENT DATE: 20160414
